FAERS Safety Report 4512313-3 (Version None)
Quarter: 2004Q4

REPORT INFORMATION
  Report Type: 
  Country: None (occurrence: None)
  Receive Date: 20041123
  Receipt Date: 20041112
  Transmission Date: 20050328
  Serious: Yes (Life-Threatening, Hospitalization, Other)
  Sender: FDA-Public Use
  Company Number: 2001003766-FJ

PATIENT
  Age: 46 Year
  Sex: Female
  Weight: 49 kg

DRUGS (5)
  1. PROGRAF [Suspect]
     Indication: BONE MARROW TRANSPLANT
     Dosage: SEE IMAGE
     Route: 048
     Dates: start: 20010508, end: 20010619
  2. PROGRAF [Suspect]
     Indication: BONE MARROW TRANSPLANT
     Dosage: SEE IMAGE
     Route: 048
     Dates: start: 20010620, end: 20010626
  3. PROGRAF [Suspect]
     Indication: BONE MARROW TRANSPLANT
     Dosage: SEE IMAGE
     Route: 048
     Dates: start: 20010627, end: 20010716
  4. PROGRAF [Suspect]
     Indication: BONE MARROW TRANSPLANT
     Dosage: SEE IMAGE
     Route: 048
     Dates: start: 20010717, end: 20010817
  5. PREDNISOLONE [Concomitant]

REACTIONS (8)
  - BLINDNESS CORTICAL [None]
  - BLOOD PRESSURE SYSTOLIC INCREASED [None]
  - BRAIN OEDEMA [None]
  - CEREBRAL HAEMORRHAGE [None]
  - ENCEPHALOPATHY [None]
  - LEUKOENCEPHALOPATHY [None]
  - PLATELET COUNT DECREASED [None]
  - SUBDURAL HAEMATOMA [None]
